FAERS Safety Report 10917314 (Version 1)
Quarter: 2015Q1

REPORT INFORMATION
  Report Type: Spontaneous
  Country: US (occurrence: US)
  Receive Date: 20150316
  Receipt Date: 20150316
  Transmission Date: 20150721
  Serious: Yes (Other)
  Sender: FDA-Public Use
  Company Number: US-JNJFOC-20150305188

PATIENT

DRUGS (1)
  1. RISPERDAL [Suspect]
     Active Substance: RISPERIDONE
     Indication: PRODUCT USED FOR UNKNOWN INDICATION
     Route: 048

REACTIONS (12)
  - Central nervous system inflammation [Unknown]
  - Bipolar disorder [Unknown]
  - Urine abnormality [Unknown]
  - Nervousness [Unknown]
  - Liver disorder [Unknown]
  - Inflammation [Unknown]
  - Arthropathy [Unknown]
  - Schizophrenia [Unknown]
  - Gastric disorder [Unknown]
  - Neoplasm malignant [Unknown]
  - Renal disorder [Unknown]
  - Breast enlargement [Unknown]
